FAERS Safety Report 11219491 (Version 1)
Quarter: 2015Q2

REPORT INFORMATION
  Report Type: Spontaneous
  Country: FR (occurrence: None)
  Receive Date: 20150624
  Receipt Date: 20150624
  Transmission Date: 20150821
  Serious: Yes (Other)
  Sender: FDA-Public Use
  Company Number: FR2015GSK086965

PATIENT
  Sex: Male

DRUGS (1)
  1. ABACAVIR (ABACAVIR SULPHATE) UNKNOWN [Suspect]
     Active Substance: ABACAVIR
     Indication: ILL-DEFINED DISORDER
     Route: 048
     Dates: end: 2015

REACTIONS (1)
  - Angioedema [None]
